FAERS Safety Report 4474937-1 (Version None)
Quarter: 2004Q3

REPORT INFORMATION
  Report Type: 
  Country: None (occurrence: None)
  Receive Date: 20040923
  Receipt Date: 20040701
  Transmission Date: 20050211
  Serious: No
  Sender: FDA-Public Use
  Company Number: USA040771660

PATIENT
  Age: 80 Year
  Sex: Female

DRUGS (1)
  1. FORTEO [Suspect]
     Indication: SPINAL FRACTURE
     Dates: start: 20040603

REACTIONS (4)
  - NAUSEA [None]
  - RETCHING [None]
  - SOMNOLENCE [None]
  - VOMITING [None]
